FAERS Safety Report 25308143 (Version 1)
Quarter: 2025Q2

REPORT INFORMATION
  Report Type: Spontaneous
  Country: TW (occurrence: TW)
  Receive Date: 20250513
  Receipt Date: 20250513
  Transmission Date: 20250716
  Serious: Yes (Other)
  Sender: FRESENIUS KABI
  Company Number: TW-FreseniusKabi-FK202506798

PATIENT
  Age: 81 Year
  Sex: Male
  Weight: 50 kg

DRUGS (9)
  1. PROPOFOL [Suspect]
     Active Substance: PROPOFOL
     Indication: Anaesthesia
     Route: 042
     Dates: end: 20250417
  2. FENTANYL INJECTION 0.05MG/ML ^PPCD^ [Concomitant]
     Indication: Analgesic therapy
     Route: 042
     Dates: start: 20250417, end: 20250417
  3. FENTANYL INJECTION 0.05MG/ML ^PPCD^ [Concomitant]
     Indication: Anaesthesia
  4. DYNASTAT 40MG POWDER FOR SOLUTION FOR INJECTION [Concomitant]
     Indication: Antiinflammatory therapy
     Route: 042
     Dates: start: 20250417, end: 20250417
  5. DYNASTAT 40MG POWDER FOR SOLUTION FOR INJECTION [Concomitant]
     Indication: Analgesic therapy
  6. DYNASTAT 40MG POWDER FOR SOLUTION FOR INJECTION [Concomitant]
     Indication: Pyrexia
  7. Acetamol Injection  1g ^Standard^ [Concomitant]
     Indication: Analgesic therapy
     Route: 042
     Dates: start: 20250417, end: 20250417
  8. Acetamol Injection  1g ^Standard^ [Concomitant]
     Indication: Pyrexia
  9. CEFAZOLIN INJECTION 1GM ^C.C.P.^ [Concomitant]
     Indication: Infection
     Route: 042
     Dates: start: 20250417, end: 20250417

REACTIONS (1)
  - Dermatitis allergic [Recovered/Resolved]

NARRATIVE: CASE EVENT DATE: 20250417
